FAERS Safety Report 7348441-7 (Version None)
Quarter: 2011Q1

REPORT INFORMATION
  Report Type: 
  Country: None (occurrence: None)
  Receive Date: 20110311
  Receipt Date: 20110308
  Transmission Date: 20110831
  Serious: Yes (Death)
  Sender: FDA-Public Use
  Company Number: PHHY2011US16286

PATIENT

DRUGS (2)
  1. MORPHINE [Concomitant]
  2. ZOMETA [Suspect]
     Dosage: UNK

REACTIONS (2)
  - NEOPLASM MALIGNANT [None]
  - BILE DUCT CANCER STAGE IV [None]
